FAERS Safety Report 8464701-0 (Version None)
Quarter: 2012Q2

REPORT INFORMATION
  Report Type: 
  Country: None (occurrence: None)
  Receive Date: 20120626
  Receipt Date: 20120619
  Transmission Date: 20120825
  Serious: No
  Sender: FDA-Public Use
  Company Number: US-PFIZER INC-2012148330

PATIENT
  Sex: Female
  Weight: 60.317 kg

DRUGS (1)
  1. TOVIAZ [Suspect]
     Dosage: 4 MG, DAILY
     Dates: start: 20120613

REACTIONS (2)
  - HEADACHE [None]
  - CHEILITIS [None]
